FAERS Safety Report 9759369 (Version 1)
Quarter: 2013Q4

REPORT INFORMATION
  Report Type: Spontaneous
  Country: US (occurrence: None)
  Receive Date: 20131216
  Receipt Date: 20131216
  Transmission Date: 20140711
  Serious: Yes (Other)
  Sender: FDA-Public Use
  Company Number: 163-21880-12041032(0)

PATIENT
  Age: 70 Year
  Sex: Female

DRUGS (1)
  1. REVLIMID (LENALIDOMIDE) (15 MILLIGRAM, CAPSULES) [Suspect]
     Indication: PLASMA CELL MYELOMA
     Dosage: 15 MG, 21 IN 21 D, PO?10 MG, 21 IN 21 D, PO ?10 MG, 1 IN 1 D, PO?

REACTIONS (2)
  - Red blood cell count decreased [None]
  - White blood cell count decreased [None]
